FAERS Safety Report 9263972 (Version 2)
Quarter: 2013Q2

REPORT INFORMATION
  Report Type: Spontaneous
  Country: JP (occurrence: JP)
  Receive Date: 20130430
  Receipt Date: 20130519
  Transmission Date: 20140414
  Serious: Yes (Other)
  Sender: FDA-Public Use
  Company Number: JP-009507513-1304JPN016440

PATIENT
  Age: 64 Year
  Sex: 0

DRUGS (4)
  1. THERAPY UNSPECIFIED [Suspect]
  2. FAMOTIDINE D [Suspect]
  3. SPIRONOLACTONE [Concomitant]
     Dosage: UNK
     Route: 048
  4. AMPICILLIN SODIUM (+) SULBACTAM SODIUM [Concomitant]
     Dosage: 1.5 G, UNK

REACTIONS (1)
  - Bacteraemia [Recovering/Resolving]
